FAERS Safety Report 9255730 (Version 1)
Quarter: 2013Q1

REPORT INFORMATION
  Report Type: Spontaneous
  Country: US (occurrence: None)
  Receive Date: 20121212
  Receipt Date: 20121212
  Transmission Date: 20140127
  Serious: No
  Sender: FDA-Public Use
  Company Number: 1210USA001603

PATIENT
  Age: 60 Year
  Sex: Male
  Weight: 76.2 kg

DRUGS (2)
  1. PEGINTRON [Suspect]
     Indication: HEPATITIS C
     Route: 058
     Dates: start: 20120824
  2. REBETOL [Suspect]
     Indication: HEPATITIS C
     Route: 048
     Dates: start: 20120824

REACTIONS (15)
  - Mood swings [None]
  - Red blood cell count decreased [None]
  - Insomnia [None]
  - Weight decreased [None]
  - Pain [None]
  - Red blood cell count decreased [None]
  - Platelet count decreased [None]
  - Malaise [None]
  - Fatigue [None]
  - Irritability [None]
  - White blood cell count decreased [None]
  - Rash [None]
  - Pruritus [None]
  - Depression [None]
  - White blood cell count decreased [None]
